FAERS Safety Report 5656232-8 (Version None)
Quarter: 2008Q1

REPORT INFORMATION
  Report Type: 
  Country: None (occurrence: None)
  Receive Date: 20080305
  Receipt Date: 20080104
  Transmission Date: 20080703
  Serious: Yes (Hospitalization)
  Sender: FDA-Public Use
  Company Number: FABR-1000021

PATIENT
  Age: 53 Year
  Sex: Female
  Weight: 55 kg

DRUGS (4)
  1. FABRAZYME [Suspect]
     Indication: FABRY'S DISEASE
     Dosage: 55 MG, Q2W, INTRAVENOUS
     Route: 042
     Dates: start: 20070621
  2. FLOXACILLIN SODIUM [Concomitant]
  3. NYSTATIN [Concomitant]
  4. FLUCONAZOLE [Concomitant]

REACTIONS (6)
  - FACIAL PAIN [None]
  - LOCAL SWELLING [None]
  - ORAL CANDIDIASIS [None]
  - PARAESTHESIA [None]
  - SWELLING FACE [None]
  - VIRAL INFECTION [None]
